FAERS Safety Report 4749213-X (Version None)
Quarter: 2005Q3

REPORT INFORMATION
  Report Type: 
  Country: None (occurrence: None)
  Receive Date: 20050819
  Receipt Date: 20050810
  Transmission Date: 20060218
  Serious: Yes (Hospitalization)
  Sender: FDA-Public Use
  Company Number: NO-BRISTOL-MYERS SQUIBB COMPANY-13073093

PATIENT
  Age: 85 Year
  Sex: Male

DRUGS (2)
  1. APROVEL [Suspect]
     Route: 048
     Dates: end: 20040301
  2. VIOXX [Suspect]
     Dates: end: 20040301

REACTIONS (5)
  - HALLUCINATION [None]
  - HYPERKALAEMIA [None]
  - MENTAL STATUS CHANGES [None]
  - RENAL FAILURE [None]
  - THROAT TIGHTNESS [None]
